FAERS Safety Report 9469404 (Version 1)
Quarter: 2013Q3

REPORT INFORMATION
  Report Type: Spontaneous
  Country: CA (occurrence: CA)
  Receive Date: 20130821
  Receipt Date: 20130821
  Transmission Date: 20140515
  Serious: Yes (Hospitalization)
  Sender: FDA-Public Use
  Company Number: CA-ROCHE-1264326

PATIENT
  Age: 38 Year
  Sex: Female

DRUGS (5)
  1. XOLAIR [Suspect]
     Indication: ASTHMA
     Route: 058
     Dates: start: 20110825
  2. XOLAIR [Suspect]
     Route: 058
     Dates: start: 20110928, end: 20111024
  3. XOLAIR [Suspect]
     Route: 065
     Dates: start: 20111024
  4. SYMBICORT [Concomitant]
  5. SYNTHROID [Concomitant]

REACTIONS (6)
  - Viral myocarditis [Unknown]
  - Pericarditis [Unknown]
  - Malaise [Unknown]
  - Asthenia [Unknown]
  - General physical health deterioration [Unknown]
  - Nausea [Unknown]
